FAERS Safety Report 8335428-0 (Version None)
Quarter: 2012Q2

REPORT INFORMATION
  Report Type: 
  Country: None (occurrence: None)
  Receive Date: 20120503
  Receipt Date: 20120423
  Transmission Date: 20120825
  Serious: No
  Sender: FDA-Public Use
  Company Number: ES-B.I. PHARMACEUTICALS,INC./RIDGEFIELD-2012-ES-00177ES

PATIENT
  Age: 70 Year
  Sex: Male

DRUGS (2)
  1. TRAJENTA [Suspect]
     Dosage: 5 MG
     Route: 048
  2. STATIN [Suspect]

REACTIONS (2)
  - SKIN EXFOLIATION [None]
  - SKIN REACTION [None]
